FAERS Safety Report 9056086 (Version 2)
Quarter: 2013Q4

REPORT INFORMATION
  Report Type: Spontaneous
  Country: US (occurrence: US)
  Receive Date: 20130205
  Receipt Date: 20131022
  Transmission Date: 20140711
  Serious: Yes (Hospitalization, Other)
  Sender: FDA-Public Use
  Company Number: US-BAYER-2013-012191

PATIENT
  Age: 27 Year
  Sex: Female
  Weight: 80.27 kg

DRUGS (4)
  1. MIRENA [Suspect]
     Indication: CONTRACEPTION
     Dosage: 20 MCG/24HR, CONT
     Route: 015
     Dates: start: 20081209, end: 20090128
  2. LEXAPRO [Concomitant]
     Indication: POSTPARTUM DEPRESSION
     Dosage: 10 MG, QD
     Route: 048
     Dates: start: 200811, end: 200912
  3. VITAMIN C [Concomitant]
  4. CALCIUM [Concomitant]

REACTIONS (6)
  - Medical device complication [None]
  - Injury [None]
  - Pain [None]
  - Uterine perforation [None]
  - Device issue [None]
  - Anxiety [None]
